FAERS Safety Report 23267789 (Version 1)
Quarter: 2023Q4

REPORT INFORMATION
  Report Type: Spontaneous
  Country: US (occurrence: None)
  Receive Date: 20231205
  Receipt Date: 20231205
  Transmission Date: 20240110
  Serious: No
  Sender: FDA-Public Use
  Company Number: None

PATIENT
  Sex: 0

DRUGS (1)
  1. ARIPIPRAZOLE [Suspect]
     Active Substance: ARIPIPRAZOLE

REACTIONS (6)
  - Galactorrhoea [None]
  - Restlessness [None]
  - Insomnia [None]
  - Decreased appetite [None]
  - Agitation [None]
  - Anxiety [None]
